FAERS Safety Report 4855371-9 (Version None)
Quarter: 2005Q4

REPORT INFORMATION
  Report Type: 
  Country: None (occurrence: None)
  Receive Date: 20051125
  Receipt Date: 20050330
  Transmission Date: 20060501
  Serious: Yes (Hospitalization)
  Sender: FDA-Public Use
  Company Number: ATO-05-0101

PATIENT
  Age: 27 Year
  Sex: Female

DRUGS (5)
  1. TRISENOX [Suspect]
     Indication: ACUTE MYELOID LEUKAEMIA
     Dosage: 11 MG (0.15 MG/KG,DALIY),IVI
     Dates: start: 20050315
  2. PROTONIX [Concomitant]
  3. MEROPENEM [Concomitant]
  4. PERCOCET [Concomitant]
  5. PHENERGAN [Concomitant]

REACTIONS (4)
  - CONTUSION [None]
  - INFECTION [None]
  - TACHYCARDIA [None]
  - THROMBOCYTOPENIA [None]
